FAERS Safety Report 6288067-X (Version None)
Quarter: 2009Q3

REPORT INFORMATION
  Report Type: 
  Country: None (occurrence: None)
  Receive Date: 20090729
  Receipt Date: 20090717
  Transmission Date: 20100115
  Serious: Yes (Other)
  Sender: FDA-Public Use
  Company Number: PHHY2009MX30010

PATIENT
  Age: 44 Year
  Sex: Female

DRUGS (3)
  1. DIOVAN [Suspect]
     Indication: HYPERTENSION
     Dosage: 1 TABLET (160 MG) DAILY
     Route: 048
     Dates: start: 20070801, end: 20090630
  2. BISOPROLOL FUMARATE [Concomitant]
     Indication: HYPERTENSION
     Dosage: 1 TABLET PER DAY
  3. NIFEDIPINE [Concomitant]
     Dosage: UNK
     Dates: start: 20090615

REACTIONS (8)
  - ABNORMAL DREAMS [None]
  - ANXIETY [None]
  - CEREBROVASCULAR INSUFFICIENCY [None]
  - ERYTHEMA [None]
  - HEADACHE [None]
  - HYPERTENSION [None]
  - HYPERTRIGLYCERIDAEMIA [None]
  - OEDEMA PERIPHERAL [None]
